FAERS Safety Report 8972762 (Version 2)
Quarter: 2013Q2

REPORT INFORMATION
  Report Type: Spontaneous
  Country: DE (occurrence: DE)
  Receive Date: 20121218
  Receipt Date: 20130403
  Transmission Date: 20140414
  Serious: Yes (Other)
  Sender: FDA-Public Use
  Company Number: DE-EISAI INC-E2007-00977-SPO-DE

PATIENT
  Age: 26 Year
  Sex: Female
  Weight: 67 kg

DRUGS (6)
  1. FYCOMPA [Suspect]
     Indication: COMPLEX PARTIAL SEIZURES
     Route: 048
     Dates: start: 20121107, end: 201211
  2. FYCOMPA [Suspect]
     Route: 048
     Dates: start: 201211
  3. LAMOTRIGIN [Concomitant]
     Route: 048
     Dates: start: 2004
  4. VIMPAT [Concomitant]
     Route: 048
     Dates: start: 2010
  5. TROBALT [Concomitant]
     Route: 048
     Dates: start: 2012
  6. CERAZETTE [Concomitant]
     Indication: CONTRACEPTION
     Route: 048

REACTIONS (3)
  - Epilepsy [Recovering/Resolving]
  - Fall [Recovering/Resolving]
  - Fatigue [Recovering/Resolving]
